FAERS Safety Report 5884044-9 (Version None)
Quarter: 2008Q3

REPORT INFORMATION
  Report Type: 
  Country: None (occurrence: None)
  Receive Date: 20080915
  Receipt Date: 20080905
  Transmission Date: 20090109
  Serious: Yes (Life-Threatening, Hospitalization, Other)
  Sender: FDA-Public Use
  Company Number: GB-MERCK-0807GBR00135

PATIENT
  Age: 66 Year
  Sex: Female

DRUGS (5)
  1. ZOCOR [Suspect]
     Indication: HYPERCHOLESTEROLAEMIA
     Route: 048
     Dates: start: 19980612, end: 20080702
  2. LEVOTHYROXINE SODIUM [Concomitant]
     Indication: HYPOTHYROIDISM
     Route: 048
     Dates: start: 20030620
  3. PRIMIDONE [Concomitant]
     Indication: PETIT MAL EPILEPSY
     Route: 048
     Dates: start: 20010101
  4. RAMIPRIL [Concomitant]
     Indication: HYPERTENSION
     Route: 048
     Dates: start: 20080501
  5. TOPIRAMATE [Concomitant]
     Indication: PETIT MAL EPILEPSY
     Route: 048

REACTIONS (4)
  - MALAISE [None]
  - MUSCULAR WEAKNESS [None]
  - PNEUMONITIS [None]
  - RASH GENERALISED [None]
